FAERS Safety Report 11628374 (Version 1)
Quarter: 2015Q4

REPORT INFORMATION
  Report Type: Spontaneous
  Country: US (occurrence: US)
  Receive Date: 20151014
  Receipt Date: 20151014
  Transmission Date: 20160304
  Serious: Yes (Death, Other)
  Sender: FDA-Public Use
  Company Number: US-009507513-1510USA003190

PATIENT
  Sex: Female

DRUGS (1)
  1. TEMOZOLOMIDE. [Suspect]
     Active Substance: TEMOZOLOMIDE
     Indication: CHEMOTHERAPY
     Dosage: UNK
     Route: 048

REACTIONS (1)
  - Neoplasm malignant [Fatal]
